FAERS Safety Report 24387996 (Version 1)
Quarter: 2024Q4

REPORT INFORMATION
  Report Type: Spontaneous
  Country: EU (occurrence: EU)
  Receive Date: 20241002
  Receipt Date: 20241002
  Transmission Date: 20250114
  Serious: Yes (Other)
  Sender: OCTAPHARMA
  Company Number: DE-AMK-280319

PATIENT
  Age: 70 Year
  Sex: Male

DRUGS (1)
  1. OCTAGAM IMMUNE GLOBULIN (HUMAN) [Suspect]
     Active Substance: HUMAN IMMUNOGLOBULIN G
     Indication: Lymphocytic leukaemia
     Dates: start: 20240906, end: 20240906

REACTIONS (3)
  - Syncope [Unknown]
  - Tremor [Unknown]
  - Pallor [Unknown]

NARRATIVE: CASE EVENT DATE: 20240906
